FAERS Safety Report 24131259 (Version 1)
Quarter: 2024Q3

REPORT INFORMATION
  Report Type: Spontaneous
  Country: DE (occurrence: DE)
  Receive Date: 20240724
  Receipt Date: 20240724
  Transmission Date: 20241017
  Serious: Yes (Death, Other)
  Sender: ELI LILLY AND CO
  Company Number: DE-ELI_LILLY_AND_COMPANY-DE202407012667

PATIENT
  Age: 68 Year
  Sex: Male

DRUGS (2)
  1. INSULIN HUMAN [Suspect]
     Active Substance: INSULIN HUMAN
     Indication: Product used for unknown indication
     Dosage: UNK UNK, UNKNOWN
     Route: 065
  2. METOPROLOL [Suspect]
     Active Substance: METOPROLOL
     Indication: Product used for unknown indication
     Dosage: UNK, UNKNOWN
     Route: 065

REACTIONS (8)
  - Completed suicide [Fatal]
  - Intentional overdose [Fatal]
  - Hypoglycaemia [Fatal]
  - Pulmonary embolism [Unknown]
  - Thrombosis [Unknown]
  - Seizure [Unknown]
  - Injection site oedema [Unknown]
  - Alcohol poisoning [Unknown]
